FAERS Safety Report 5033157-2 (Version None)
Quarter: 2006Q2

REPORT INFORMATION
  Report Type: 
  Country: None (occurrence: None)
  Receive Date: 20060511
  Receipt Date: 20060209
  Transmission Date: 20061013
  Serious: No
  Sender: FDA-Public Use
  Company Number: 200611472US

PATIENT
  Sex: Male

DRUGS (3)
  1. INSULIN GLULISINE (APIDRA) [Suspect]
     Indication: DIABETES MELLITUS INSULIN-DEPENDENT
  2. INSULIN GLULISINE (APIDRA) [Suspect]
     Indication: DIABETES MELLITUS INSULIN-DEPENDENT
  3. INSULIN [Suspect]

REACTIONS (1)
  - BLOOD GLUCOSE INCREASED [None]
